FAERS Safety Report 8851404 (Version 6)
Quarter: 2014Q2

REPORT INFORMATION
  Report Type: Report from Study
  Country: BR (occurrence: BR)
  Receive Date: 20121022
  Receipt Date: 20140624
  Transmission Date: 20141212
  Serious: Yes (Hospitalization, Other)
  Sender: FDA-Public Use
  Company Number: BR-ROCHE-1146552

PATIENT
  Sex: Female
  Weight: 75 kg

DRUGS (17)
  1. MABTHERA [Suspect]
     Indication: RHEUMATOID ARTHRITIS
     Route: 042
     Dates: start: 20110316
  2. MABTHERA [Suspect]
     Route: 042
     Dates: start: 20110330
  3. MABTHERA [Suspect]
     Route: 042
     Dates: start: 20111004
  4. MABTHERA [Suspect]
     Route: 042
     Dates: start: 20111019
  5. MABTHERA [Suspect]
     Route: 042
     Dates: start: 20120522
  6. MABTHERA [Suspect]
     Route: 042
     Dates: start: 20120605
  7. MABTHERA [Suspect]
     Route: 042
     Dates: start: 20130327
  8. MABTHERA [Suspect]
     Route: 042
     Dates: start: 20130410
  9. MABTHERA [Suspect]
     Route: 042
     Dates: start: 20140108
  10. MABTHERA [Suspect]
     Route: 042
     Dates: start: 20140104
  11. MELOXICAM [Concomitant]
     Indication: PAIN
  12. METHOTREXATE [Concomitant]
  13. ANGIOLONG (BRAZIL) [Concomitant]
  14. CALTRATE [Concomitant]
     Route: 065
  15. SUSTRATE [Concomitant]
  16. SIMVASTATIN [Concomitant]
     Route: 065
  17. TAMOXIFEN [Concomitant]

REACTIONS (8)
  - Device issue [Not Recovered/Not Resolved]
  - Breast cancer [Recovered/Resolved]
  - Gait disturbance [Not Recovered/Not Resolved]
  - Joint swelling [Not Recovered/Not Resolved]
  - Device malfunction [Not Recovered/Not Resolved]
  - Joint swelling [Not Recovered/Not Resolved]
  - Peripheral swelling [Unknown]
  - Knee deformity [Not Recovered/Not Resolved]
